FAERS Safety Report 9524418 (Version 1)
Quarter: 2013Q1

REPORT INFORMATION
  Report Type: Spontaneous
  Country: US (occurrence: None)
  Receive Date: 20130313
  Receipt Date: 20130313
  Transmission Date: 20140127
  Serious: No
  Sender: FDA-Public Use
  Company Number: 1000031042

PATIENT
  Sex: Female

DRUGS (1)
  1. MILNACIPRAN HYDROCHLORIDE [Suspect]

REACTIONS (2)
  - Nausea [None]
  - Dizziness [None]
